FAERS Safety Report 6680703-9 (Version None)
Quarter: 2010Q2

REPORT INFORMATION
  Report Type: 
  Country: None (occurrence: None)
  Receive Date: 20100414
  Receipt Date: 20100331
  Transmission Date: 20101027
  Serious: Yes (Hospitalization)
  Sender: FDA-Public Use
  Company Number: TR-BAYER-201021655GPV

PATIENT
  Age: 28 Year
  Sex: Female

DRUGS (3)
  1. YASMIN [Suspect]
     Indication: CONTRACEPTION
     Route: 048
  2. RED MEXICO PEPPER [Suspect]
     Indication: WEIGHT DECREASED
     Route: 048
     Dates: end: 20100223
  3. ROCEPHIN [Concomitant]
     Indication: URINARY TRACT INFECTION
     Route: 042
     Dates: start: 20100324

REACTIONS (1)
  - THROMBOCYTOPENIA [None]
